FAERS Safety Report 8013524-5 (Version None)
Quarter: 2011Q4

REPORT INFORMATION
  Report Type: 
  Country: None (occurrence: None)
  Receive Date: 20111229
  Receipt Date: 20111219
  Transmission Date: 20120403
  Serious: Yes (Death)
  Sender: FDA-Public Use
  Company Number: US-PFIZER INC-2011309953

PATIENT
  Age: 56 Year
  Sex: Male

DRUGS (8)
  1. OXYCODONE HYDROCHLORIDE [Suspect]
  2. METHADONE HCL [Suspect]
  3. DIAZEPAM [Suspect]
  4. AMITRIPTYLINE HCL TAB [Suspect]
  5. ETHANOL [Suspect]
  6. CITALOPRAM HYDROBROMIDE [Suspect]
  7. MEMANTINE [Suspect]
  8. KETAMINE HCL [Suspect]

REACTIONS (2)
  - CARDIO-RESPIRATORY ARREST [None]
  - DRUG ABUSE [None]
